FAERS Safety Report 25376196 (Version 2)
Quarter: 2025Q3

REPORT INFORMATION
  Report Type: Spontaneous
  Country: JP (occurrence: JP)
  Receive Date: 20250529
  Receipt Date: 20250903
  Transmission Date: 20251020
  Serious: Yes (Death)
  Sender: MERCK SHARP & DOHME LLC
  Company Number: JP-009507513-2281365

PATIENT
  Age: 89 Year
  Sex: Male

DRUGS (1)
  1. STROMECTOL [Suspect]
     Active Substance: IVERMECTIN
     Indication: Scabies
     Route: 048
     Dates: end: 20250502

REACTIONS (4)
  - Pyrexia [Fatal]
  - Anaemia [Fatal]
  - Urinary tract infection [Fatal]
  - Extra dose administered [Unknown]

NARRATIVE: CASE EVENT DATE: 20250502
